FAERS Safety Report 15939472 (Version 2)
Quarter: 2019Q1

REPORT INFORMATION
  Report Type: Spontaneous
  Country: US (occurrence: US)
  Receive Date: 20190208
  Receipt Date: 20190307
  Transmission Date: 20190417
  Serious: No
  Sender: FDA-Public Use
  Company Number: US-CELGENEUS-USA-20190201244

PATIENT
  Sex: Female
  Weight: 68.55 kg

DRUGS (2)
  1. POMALYST [Suspect]
     Active Substance: POMALIDOMIDE
     Indication: PLASMA CELL MYELOMA
     Dosage: 4 MILLIGRAM
     Route: 048
     Dates: start: 201809
  2. POMALYST [Suspect]
     Active Substance: POMALIDOMIDE
     Indication: PLASMA CELL MYELOMA RECURRENT

REACTIONS (4)
  - Neuropathy peripheral [Not Recovered/Not Resolved]
  - Fungal infection [Not Recovered/Not Resolved]
  - Dry skin [Not Recovered/Not Resolved]
  - Sensitive skin [Not Recovered/Not Resolved]
